FAERS Safety Report 6201207-3 (Version None)
Quarter: 2009Q2

REPORT INFORMATION
  Report Type: 
  Country: None (occurrence: None)
  Receive Date: 20090526
  Receipt Date: 20090519
  Transmission Date: 20091009
  Serious: Yes (Hospitalization, Other)
  Sender: FDA-Public Use
  Company Number: US-JNJFOC-20090504763

PATIENT
  Sex: Female

DRUGS (5)
  1. RISPERDAL [Suspect]
     Route: 048
  2. RISPERDAL [Suspect]
     Indication: SCHIZOPHRENIA
     Route: 048
  3. TOPAMAX [Concomitant]
     Route: 065
  4. LAMICTAL [Concomitant]
     Route: 065
  5. CLOZARIL [Concomitant]
     Indication: SCHIZOPHRENIA
     Route: 065

REACTIONS (3)
  - DIABETES MELLITUS [None]
  - DRUG EFFECT DECREASED [None]
  - PSYCHOTIC DISORDER [None]
